FAERS Safety Report 16585163 (Version 2)
Quarter: 2019Q3

REPORT INFORMATION
  Report Type: Spontaneous
  Country: JP (occurrence: JP)
  Receive Date: 20190717
  Receipt Date: 20190718
  Transmission Date: 20191004
  Serious: Yes (Death, Other)
  Sender: FDA-Public Use
  Company Number: JP-ELI_LILLY_AND_COMPANY-JP201907002822

PATIENT
  Age: 74 Year
  Sex: Male
  Weight: 42 kg

DRUGS (1)
  1. GEMCITABINE HYDROCHLORIDE. [Suspect]
     Active Substance: GEMCITABINE HYDROCHLORIDE
     Indication: CUTANEOUS T-CELL LYMPHOMA
     Dosage: 1000 MG/M2, BID CYCLE 1 FROM 20 MARCH AND CYCLE 2 FROM 27 MARCH
     Route: 065

REACTIONS (2)
  - Pancytopenia [Recovered/Resolved]
  - Small intestinal perforation [Fatal]
